FAERS Safety Report 16853026 (Version 1)
Quarter: 2019Q3

REPORT INFORMATION
  Report Type: Spontaneous
  Country: US (occurrence: US)
  Receive Date: 20190925
  Receipt Date: 20190925
  Transmission Date: 20191005
  Serious: Yes (Hospitalization, Other)
  Sender: FDA-Public Use
  Company Number: US-NAPPMUNDI-USA-2019-0148357

PATIENT
  Sex: Female

DRUGS (2)
  1. HYDROMORPHONE HCL (SIMILAR TO 19-892) [Suspect]
     Active Substance: HYDROMORPHONE HYDROCHLORIDE
     Indication: PAIN
     Dosage: UNK
     Route: 048
     Dates: end: 201812
  2. HYDROMORPHONE HCL (SIMILAR TO 19-892) [Suspect]
     Active Substance: HYDROMORPHONE HYDROCHLORIDE
     Dosage: UNK
     Route: 048
     Dates: start: 201812, end: 201903

REACTIONS (18)
  - Drug abuse [Recovering/Resolving]
  - Multiple fractures [Unknown]
  - Road traffic accident [Unknown]
  - Drug withdrawal syndrome [Recovering/Resolving]
  - Overdose [Recovered/Resolved]
  - Drug dependence [Recovering/Resolving]
  - Memory impairment [Unknown]
  - Surgery [Unknown]
  - Hallucination [Recovered/Resolved]
  - Depression [Not Recovered/Not Resolved]
  - Femur fracture [Unknown]
  - Pain [Not Recovered/Not Resolved]
  - Fall [Unknown]
  - Loss of consciousness [Recovered/Resolved]
  - Crying [Unknown]
  - Fatigue [Unknown]
  - Malaise [Recovered/Resolved]
  - Drug dose titration not performed [Recovered/Resolved]

NARRATIVE: CASE EVENT DATE: 201903
